FAERS Safety Report 7715717-0 (Version None)
Quarter: 2011Q3

REPORT INFORMATION
  Report Type: 
  Country: None (occurrence: None)
  Receive Date: 20110829
  Receipt Date: 20110826
  Transmission Date: 20111222
  Serious: Yes (Other)
  Sender: FDA-Public Use
  Company Number: US-PFIZER INC-2011199582

PATIENT
  Sex: Male
  Weight: 99.773 kg

DRUGS (3)
  1. LYRICA [Suspect]
     Indication: SPINAL CORD INJURY
     Dosage: 150 MG, 2X/DAY
     Route: 048
     Dates: start: 20020101
  2. LIPITOR [Concomitant]
     Indication: BLOOD CHOLESTEROL INCREASED
     Dosage: UNK
  3. BACLOFEN [Concomitant]
     Dosage: UNK

REACTIONS (1)
  - HYPERTENSION [None]
